FAERS Safety Report 13826744 (Version 1)
Quarter: 2017Q3

REPORT INFORMATION
  Report Type: Spontaneous
  Country: US (occurrence: US)
  Receive Date: 20170802
  Receipt Date: 20170802
  Transmission Date: 20171127
  Serious: No
  Sender: FDA-Public Use
  Company Number: US-ROCHE-646868

PATIENT
  Sex: Female
  Weight: 88 kg

DRUGS (6)
  1. TRIAMTERENE. [Concomitant]
     Active Substance: TRIAMTERENE
     Route: 065
  2. HYDROCODONE [Concomitant]
     Active Substance: HYDROCODONE
     Route: 065
  3. BONIVA [Suspect]
     Active Substance: IBANDRONATE SODIUM
     Indication: PRODUCT USED FOR UNKNOWN INDICATION
     Route: 048
     Dates: start: 20090708, end: 20090808
  4. CYCLOBENZAPRINE. [Concomitant]
     Active Substance: CYCLOBENZAPRINE
     Route: 065
  5. NORVASC [Concomitant]
     Active Substance: AMLODIPINE BESYLATE
     Route: 065
  6. ANALGESIC NOS [Concomitant]
     Active Substance: UNSPECIFIED INGREDIENT
     Dosage: DRUG: SKELAX
     Route: 065

REACTIONS (4)
  - Peripheral swelling [Unknown]
  - Hyperhidrosis [Unknown]
  - Musculoskeletal pain [Unknown]
  - Dyspnoea [Unknown]
